FAERS Safety Report 10559653 (Version 1)
Quarter: 2014Q4

REPORT INFORMATION
  Report Type: Spontaneous
  Country: JP (occurrence: JP)
  Receive Date: 20141103
  Receipt Date: 20141103
  Transmission Date: 20150529
  Serious: Yes (Other)
  Sender: FDA-Public Use
  Company Number: JP-TEVA-517602ISR

PATIENT
  Age: 74 Year
  Sex: Male

DRUGS (7)
  1. FUROSEMIDE. [Concomitant]
     Active Substance: FUROSEMIDE
     Dosage: 20MG
     Route: 065
  2. WARFARIN [Concomitant]
     Active Substance: WARFARIN
     Dosage: 1MG
     Route: 065
  3. CILOSTAZOL. [Suspect]
     Active Substance: CILOSTAZOL
     Indication: ARTERIAL OCCLUSIVE DISEASE
     Dosage: 200MG
     Route: 065
     Dates: start: 20050211, end: 20050602
  4. ASPIRIN. [Concomitant]
     Active Substance: ASPIRIN
     Dosage: 100MG
     Route: 065
  5. DIGOXIN. [Suspect]
     Active Substance: DIGOXIN
     Dosage: 0.125MG
     Route: 065
  6. CAPTOPRIL. [Concomitant]
     Active Substance: CAPTOPRIL
     Dosage: 5MG
     Route: 065
  7. CARVEDILOL. [Suspect]
     Active Substance: CARVEDILOL
     Dosage: 2.5MG
     Route: 065

REACTIONS (2)
  - Bradycardia [Unknown]
  - Gynaecomastia [Unknown]
